FAERS Safety Report 8341994-1 (Version None)
Quarter: 2012Q1

REPORT INFORMATION
  Report Type: 
  Country: None (occurrence: None)
  Receive Date: 20120330
  Receipt Date: 20030609
  Transmission Date: 20120608
  Serious: Yes (Life-Threatening, Hospitalization)
  Sender: FDA-Public Use
  Company Number: PHEH2003US03534

PATIENT
  Age: 84 Year
  Sex: Male
  Weight: 74.4 kg

DRUGS (10)
  1. LIPITOR [Concomitant]
  2. COREG [Concomitant]
  3. FUROSEMIDE [Concomitant]
  4. ACCUPRIL [Concomitant]
  5. GLIPIZIDE [Concomitant]
  6. EXELON [Suspect]
     Indication: DEMENTIA ALZHEIMER'S TYPE
     Dosage: 6 MG, BID, ORAL
     Route: 048
     Dates: start: 20030123, end: 20030515
  7. LANOXIN [Concomitant]
  8. WARFARIN SODIUM [Concomitant]
  9. TAMSULOSIN HYDROCHLORIDE (FLOMAX) (TAMSULOSIN HYDROCHLORIDE) [Concomitant]
  10. ZOCOR [Concomitant]

REACTIONS (3)
  - SUICIDE ATTEMPT [None]
  - AGGRESSION [None]
  - LOSS OF CONSCIOUSNESS [None]
